FAERS Safety Report 14691036 (Version 3)
Quarter: 2018Q2

REPORT INFORMATION
  Report Type: Report from Study
  Country: US (occurrence: US)
  Receive Date: 20180328
  Receipt Date: 20180416
  Transmission Date: 20180711
  Serious: Yes (Hospitalization, Other)
  Sender: FDA-Public Use
  Company Number: US-GILEAD-2018-0329168

PATIENT
  Age: 67 Year
  Sex: Male

DRUGS (1)
  1. RANOLAZINE. [Suspect]
     Active Substance: RANOLAZINE
     Indication: ANGINA PECTORIS
     Dosage: 100MG, ORAL, TWICE DAILY
     Route: 048
     Dates: start: 201708

REACTIONS (4)
  - Device occlusion [Not Recovered/Not Resolved]
  - Drug dose omission [Not Recovered/Not Resolved]
  - Vascular graft complication [Not Recovered/Not Resolved]
  - Angina pectoris [Not Recovered/Not Resolved]

NARRATIVE: CASE EVENT DATE: 201708
